FAERS Safety Report 25454580 (Version 1)
Quarter: 2025Q2

REPORT INFORMATION
  Report Type: Spontaneous
  Country: GB (occurrence: GB)
  Receive Date: 20250619
  Receipt Date: 20250619
  Transmission Date: 20250717
  Serious: Yes (Life-Threatening, Hospitalization, Disabling, Other)
  Sender: AUROBINDO
  Company Number: GB-MHRA-MED-202506051512197980-ZPSTJ

PATIENT
  Age: 44 Year
  Sex: Male

DRUGS (3)
  1. OLANZAPINE [Suspect]
     Active Substance: OLANZAPINE
     Indication: Schizophrenia
     Dosage: 10 MILLIGRAM, TWO TIMES A DAY
     Route: 065
     Dates: start: 20250425, end: 20250502
  2. CLOZAPINE [Concomitant]
     Active Substance: CLOZAPINE
     Indication: Schizophrenia
     Route: 065
     Dates: start: 20230101
  3. CLONAZEPAM [Concomitant]
     Active Substance: CLONAZEPAM
     Indication: Agitation
     Route: 065
     Dates: start: 20250425

REACTIONS (2)
  - Neuroleptic malignant syndrome [Not Recovered/Not Resolved]
  - Medication error [Unknown]

NARRATIVE: CASE EVENT DATE: 20250502
